FAERS Safety Report 11175222 (Version 1)
Quarter: 2015Q2

REPORT INFORMATION
  Report Type: Spontaneous
  Country: None (occurrence: None)
  Receive Date: 20150608
  Receipt Date: 20150608
  Transmission Date: 20150821
  Serious: Yes (Hospitalization)
  Sender: FDA-Public Use
  Company Number: None

PATIENT

DRUGS (8)
  1. ELIQUIS [Concomitant]
     Active Substance: APIXABAN
  2. COQ10 [Concomitant]
     Active Substance: UBIDECARENONE
  3. OCCASIONAL HERBAL PEACH TEA [Concomitant]
  4. PROPAFENONE SR 325 MG [Suspect]
     Active Substance: PROPAFENONE
     Indication: ATRIAL FIBRILLATION
     Route: 048
     Dates: start: 20150226, end: 20150515
  5. VOLSAVTIN [Concomitant]
  6. FLAXSEED [Concomitant]
     Active Substance: FLAX SEED
  7. RYTHONOL SR [Concomitant]
  8. FISH OIL [Concomitant]
     Active Substance: FISH OIL

REACTIONS (3)
  - Atrial fibrillation [None]
  - Product substitution issue [None]
  - Product quality issue [None]

NARRATIVE: CASE EVENT DATE: 20150301
